FAERS Safety Report 12421636 (Version 2)
Quarter: 2016Q2

REPORT INFORMATION
  Report Type: Spontaneous
  Country: CH (occurrence: CH)
  Receive Date: 20160531
  Receipt Date: 20160606
  Transmission Date: 20160815
  Serious: Yes (Hospitalization, Other)
  Sender: FDA-Public Use
  Company Number: CH-PFIZER INC-2016273973

PATIENT
  Age: 79 Year
  Sex: Male

DRUGS (6)
  1. AZITHROMYCIN ANHYDROUS. [Suspect]
     Active Substance: AZITHROMYCIN ANHYDROUS
     Indication: ANTIBIOTIC THERAPY
     Dosage: 250 MG, TOTAL 6 TABLETS
     Dates: start: 20160302, end: 201603
  2. KETALGIN /00068902/ [Concomitant]
     Dosage: 5 MG, 1X/DAY (0-0-1-0)
     Route: 048
  3. AUGMENTIN [Suspect]
     Active Substance: AMOXICILLIN\CLAVULANATE POTASSIUM
     Indication: ANTIBIOTIC THERAPY
     Dosage: 1 G, 2X/DAY (1-0-1)
     Route: 048
     Dates: start: 20160309, end: 20160311
  4. NEUPRO [Suspect]
     Active Substance: ROTIGOTINE
     Indication: RESTLESS LEGS SYNDROME
     Dosage: 3 MG/24 H IN RESERVE
     Route: 062
     Dates: end: 201603
  5. SIFROL [Concomitant]
     Active Substance: PRAMIPEXOLE
     Dosage: 0.25 MG, 3X/DAY (0-1-1-1)
  6. PROPYCIL [Concomitant]
     Active Substance: PROPYLTHIOURACIL
     Dosage: 50 MG, EVERY THIRD DAY (1-0-0-0)
     Route: 048

REACTIONS (4)
  - Rash [Recovered/Resolved]
  - Pemphigoid [Recovered/Resolved]
  - Pruritus [Recovered/Resolved]
  - Application site erythema [Recovered/Resolved]

NARRATIVE: CASE EVENT DATE: 201603
